FAERS Safety Report 10153471 (Version 2)
Quarter: 2014Q2

REPORT INFORMATION
  Report Type: Spontaneous
  Country: TW (occurrence: TW)
  Receive Date: 20140505
  Receipt Date: 20140505
  Transmission Date: 20141212
  Serious: Yes (Hospitalization)
  Sender: FDA-Public Use
  Company Number: TW-ABBVIE-13P-153-1123931-00

PATIENT
  Age: 62 Year
  Sex: Male

DRUGS (2)
  1. LEUPRORELIN ACETATE [Suspect]
     Indication: HORMONE SUPPRESSION THERAPY
     Route: 058
  2. LEUPRORELIN ACETATE [Suspect]
     Indication: PROSTATE CANCER

REACTIONS (2)
  - Mania [Recovered/Resolved]
  - Psychiatric symptom [Recovered/Resolved]
